FAERS Safety Report 9644208 (Version 1)
Quarter: 2013Q4

REPORT INFORMATION
  Report Type: Spontaneous
  Country: FR (occurrence: FR)
  Receive Date: 20131024
  Receipt Date: 20131024
  Transmission Date: 20140711
  Serious: Yes (Other)
  Sender: FDA-Public Use
  Company Number: FR-ROCHE-1292072

PATIENT
  Age: 32 Year
  Sex: Female

DRUGS (3)
  1. MABTHERA [Suspect]
     Indication: GLOMERULONEPHRITIS
     Route: 041
     Dates: start: 20130219, end: 20130226
  2. MIRCERA [Concomitant]
     Route: 065
  3. ODRIK [Concomitant]
     Route: 065

REACTIONS (2)
  - Amenorrhoea [Recovered/Resolved]
  - Maternal exposure during pregnancy [Unknown]
